FAERS Safety Report 16027533 (Version 2)
Quarter: 2019Q1

REPORT INFORMATION
  Report Type: Spontaneous
  Country: US (occurrence: US)
  Receive Date: 20190304
  Receipt Date: 20190329
  Transmission Date: 20190418
  Serious: Yes (Hospitalization, Other)
  Sender: FDA-Public Use
  Company Number: US-SA-2019SA056529

PATIENT
  Age: 40 Year
  Sex: Female

DRUGS (29)
  1. COENZYME Q10 [Concomitant]
     Active Substance: UBIDECARENONE
  2. OMEPRAZOLE. [Concomitant]
     Active Substance: OMEPRAZOLE
  3. MONTELUKAST SODIUM. [Concomitant]
     Active Substance: MONTELUKAST SODIUM
  4. BROMELAIN PINEAPPLE ENZYME [Concomitant]
  5. ONDANSETRON [Concomitant]
     Active Substance: ONDANSETRON
  6. FOLIC ACID. [Concomitant]
     Active Substance: FOLIC ACID
  7. LORATADINE. [Concomitant]
     Active Substance: LORATADINE
  8. DOXYCYCLINE MONOHYDRATE [Concomitant]
     Active Substance: DOXYCYCLINE
  9. ACYCLOVIR [ACICLOVIR] [Concomitant]
     Active Substance: ACYCLOVIR
  10. STIOLTO RESPIMAT [Concomitant]
     Active Substance: OLODATEROL HYDROCHLORIDE\TIOTROPIUM BROMIDE MONOHYDRATE
  11. VENTOLIN HFA [Concomitant]
     Active Substance: ALBUTEROL SULFATE
  12. LEVOFLOXACIN. [Concomitant]
     Active Substance: LEVOFLOXACIN
  13. VALACYCLOVIR [Concomitant]
     Active Substance: VALACYCLOVIR HYDROCHLORIDE
  14. ALPRAZOLAM. [Concomitant]
     Active Substance: ALPRAZOLAM
  15. PAROXETINE HYDROCHLORIDE. [Concomitant]
     Active Substance: PAROXETINE HYDROCHLORIDE
  16. DUPIXENT [Suspect]
     Active Substance: DUPILUMAB
     Indication: DERMATITIS ATOPIC
     Dosage: 300 MG, QOW
     Route: 058
     Dates: start: 201901
  17. MAGNESIUM [Concomitant]
     Active Substance: MAGNESIUM
  18. DEXAMETHASONE. [Concomitant]
     Active Substance: DEXAMETHASONE
  19. DUPIXENT [Suspect]
     Active Substance: DUPILUMAB
     Indication: NEURODERMATITIS
  20. HYDROXYZINE [Concomitant]
     Active Substance: HYDROXYZINE HYDROCHLORIDE
  21. JUNEL [Concomitant]
     Active Substance: ETHINYL ESTRADIOL\NORETHINDRONE ACETATE
  22. ASPIRIN [ACETYLSALICYLIC ACID] [Concomitant]
     Active Substance: ASPIRIN
  23. TRAMADOL HYDROCHLORIDE. [Concomitant]
     Active Substance: TRAMADOL HYDROCHLORIDE
  24. VITAMIN D3 [Concomitant]
     Active Substance: CHOLECALCIFEROL
  25. BROMPHENIRAMINE MALEATE;PSEUDOEPHEDRINE [Concomitant]
  26. ELIQUIS [Concomitant]
     Active Substance: APIXABAN
  27. REVLIMID [Concomitant]
     Active Substance: LENALIDOMIDE
     Dosage: UNK
  28. ATROVENT HFA [Concomitant]
     Active Substance: IPRATROPIUM BROMIDE
  29. MEGESTROL ACETATE. [Concomitant]
     Active Substance: MEGESTROL ACETATE

REACTIONS (3)
  - Pyrexia [Recovered/Resolved]
  - Pneumonia [Recovered/Resolved]
  - Neutropenia [Unknown]

NARRATIVE: CASE EVENT DATE: 20190212
